FAERS Safety Report 6260781-1 (Version None)
Quarter: 2009Q3

REPORT INFORMATION
  Report Type: 
  Country: None (occurrence: None)
  Receive Date: 20090707
  Receipt Date: 20090623
  Transmission Date: 20100115
  Serious: Yes (Hospitalization)
  Sender: FDA-Public Use
  Company Number: 006616

PATIENT
  Age: 74 Year
  Sex: Male
  Weight: 66.1 kg

DRUGS (14)
  1. PLETAL [Suspect]
     Dosage: 50 MG, BID ORAL
     Route: 048
     Dates: start: 20090114, end: 20090423
  2. BAYASPIRIN (ACETYLSALICYLIC ACID) TABLET [Concomitant]
  3. ACTOS [Concomitant]
  4. BASEN OD (VOGLIBOSE) TABLET [Concomitant]
  5. LENDORMIN (BROTIZOLAM) TABLET [Concomitant]
  6. FRANDOL S (ISOSORBIDE DINITRATE) UNKNOWN [Concomitant]
  7. GASTER D (FAMOTIDINE) TABLET [Concomitant]
  8. GLIMICRON (GLICLAZIDE) TABLET [Concomitant]
  9. BLOPRESS (CANDESARTAN CILEXETIL) TABLET [Concomitant]
  10. AMLODIN OD (AMLODIPINE BESILATE) TABLET [Concomitant]
  11. TICLOPIDINE HCL [Concomitant]
  12. CRESTOR (ROSUVASTATIN) TABLET [Concomitant]
  13. SIGMART (NICORANDIL) TABLET [Concomitant]
  14. INSULIN (INSULIN) UNKNOWN [Concomitant]

REACTIONS (4)
  - CHEST DISCOMFORT [None]
  - HYPERHIDROSIS [None]
  - PULSE ABSENT [None]
  - TACHYCARDIA PAROXYSMAL [None]
